FAERS Safety Report 8064414-3 (Version None)
Quarter: 2012Q1

REPORT INFORMATION
  Report Type: 
  Country: None (occurrence: None)
  Receive Date: 20120123
  Receipt Date: 20120109
  Transmission Date: 20120608
  Serious: Yes (Other)
  Sender: FDA-Public Use
  Company Number: PHHY2012US002093

PATIENT
  Age: 64 Year
  Sex: Male

DRUGS (4)
  1. NAPROXEN (ALEVE) [Concomitant]
     Route: 048
  2. METFORMIN HYDROCHLORIDE [Concomitant]
     Indication: DIABETES MELLITUS
     Dosage: 1 DF, BID
     Route: 048
  3. LISINOPRIL [Concomitant]
     Indication: HYPERTENSION
     Dosage: 1 DF, UNK
     Route: 048
  4. BUFFERIN [Suspect]
     Indication: PAIN
     Dosage: 2 DF, UNK
     Route: 048
     Dates: start: 20080101

REACTIONS (4)
  - INCORRECT DRUG ADMINISTRATION DURATION [None]
  - DRUG INEFFECTIVE [None]
  - NEURALGIA [None]
  - DIABETES MELLITUS [None]
